FAERS Safety Report 8320571-2 (Version None)
Quarter: 2012Q1

REPORT INFORMATION
  Report Type: 
  Country: None (occurrence: None)
  Receive Date: 20120315
  Receipt Date: 20110228
  Transmission Date: 20120608
  Serious: Yes (Hospitalization, Other)
  Sender: FDA-Public Use
  Company Number: PHHY2010US84879

PATIENT
  Age: 58 Year
  Sex: Male

DRUGS (15)
  1. TIZANIDINE HCL [Concomitant]
  2. CLOPIDOGREL [Concomitant]
  3. FAMPRIDINE [Concomitant]
  4. VARDENAFIL HYDROCHLORIDE (LEVITRA) [Concomitant]
  5. SILDENAFIL [Concomitant]
  6. ATORVASTATIN CALCIUM [Concomitant]
  7. DIAZEPAM [Concomitant]
  8. ATENOLOL [Concomitant]
  9. GILENYA [Suspect]
     Indication: MULTIPLE SCLEROSIS
     Dosage: 0.5 MG, QD, ORAL
     Route: 048
     Dates: start: 20101206
  10. FENOFIBRATE [Concomitant]
  11. MULTIVITAMIN [Concomitant]
  12. ASPIRIN [Concomitant]
  13. COPAXONE [Concomitant]
  14. MODAFINIL [Concomitant]
  15. ZOLPIDEM [Concomitant]

REACTIONS (8)
  - MULTIPLE SCLEROSIS RELAPSE [None]
  - DIPLOPIA [None]
  - MUSCULAR WEAKNESS [None]
  - VISUAL ACUITY REDUCED [None]
  - HYPERHIDROSIS [None]
  - MALAISE [None]
  - MACULAR OEDEMA [None]
  - VISION BLURRED [None]
